FAERS Safety Report 6267083-8 (Version None)
Quarter: 2009Q3

REPORT INFORMATION
  Report Type: 
  Country: None (occurrence: None)
  Receive Date: 20090714
  Receipt Date: 20090707
  Transmission Date: 20100115
  Serious: Yes (Other)
  Sender: FDA-Public Use
  Company Number: JP-BRISTOL-MYERS SQUIBB COMPANY-14697478

PATIENT

DRUGS (3)
  1. BARACLUDE [Suspect]
     Indication: HEPATITIS B
     Dosage: DECREASED TO 1000 AS OF 06JUL2009 AND FINALLY TO 700 AS OF 07JUL2009
     Route: 048
     Dates: start: 20090623, end: 20090707
  2. CARBAZOCHROME SODIUM SULFONATE [Suspect]
  3. TRANEXAMIC ACID [Suspect]

REACTIONS (1)
  - AGRANULOCYTOSIS [None]
